FAERS Safety Report 6982264-3 (Version None)
Quarter: 2010Q3

REPORT INFORMATION
  Report Type: 
  Country: None (occurrence: None)
  Receive Date: 20100914
  Receipt Date: 20091221
  Transmission Date: 20110219
  Serious: No
  Sender: FDA-Public Use
  Company Number: US-PFIZER INC-2009313126

PATIENT
  Sex: Female
  Weight: 57 kg

DRUGS (3)
  1. LYRICA [Suspect]
     Indication: FIBROMYALGIA
     Dosage: 75 MG, 2X/DAY
     Route: 048
     Dates: start: 20090501
  2. LYRICA [Suspect]
     Dosage: 50 MG, 2X/DAY
     Route: 048
     Dates: start: 20091201
  3. ZYRTEC [Concomitant]
     Indication: HYPERSENSITIVITY
     Dosage: FREQUENCY: AS NEEDED,

REACTIONS (2)
  - MUSCULAR WEAKNESS [None]
  - MYALGIA [None]
